FAERS Safety Report 17767209 (Version 1)
Quarter: 2020Q2

REPORT INFORMATION
  Report Type: Spontaneous
  Country: CA (occurrence: CA)
  Receive Date: 20200511
  Receipt Date: 20200511
  Transmission Date: 20200714
  Serious: Yes (Hospitalization)
  Sender: FDA-Public Use
  Company Number: CA-TEVA-2020-CA-1233102

PATIENT
  Age: 88 Year
  Sex: Male

DRUGS (7)
  1. PANTOLOC[PANTOPRAZOLE] [Concomitant]
  2. VITAMIN D[COLECALCIFEROL] [Concomitant]
     Active Substance: CHOLECALCIFEROL
  3. SILDENAFIL CITRATE. [Suspect]
     Active Substance: SILDENAFIL CITRATE
     Indication: PULMONARY ARTERIAL HYPERTENSION
     Dosage: 60 MILLIGRAM DAILY;
     Route: 048
  4. LYRICA [Concomitant]
     Active Substance: PREGABALIN
  5. IRON [Concomitant]
     Active Substance: IRON
  6. ALLOPURINOL. [Concomitant]
     Active Substance: ALLOPURINOL
  7. XARELTO [Concomitant]
     Active Substance: RIVAROXABAN

REACTIONS (1)
  - Pneumonia [Unknown]
